FAERS Safety Report 19052225 (Version 1)
Quarter: 2021Q1

REPORT INFORMATION
  Report Type: Other
  Country: BR (occurrence: BR)
  Receive Date: 20210324
  Receipt Date: 20210324
  Transmission Date: 20210420
  Serious: Yes (Other)
  Sender: FDA-Public Use
  Company Number: BR-ROCHE-2455630

PATIENT
  Age: 55 Year
  Sex: Female
  Weight: 81.5 kg

DRUGS (17)
  1. DOMPERIDONE [Concomitant]
     Active Substance: DOMPERIDONE
  2. HYDROCHLOROTHIAZIDE. [Concomitant]
     Active Substance: HYDROCHLOROTHIAZIDE
  3. OMEPRAZOLE. [Concomitant]
     Active Substance: OMEPRAZOLE
  4. AMLODIPINE [Concomitant]
     Active Substance: AMLODIPINE BESYLATE
  5. VITAMIN B COMPLEX [Concomitant]
     Active Substance: CYANOCOBALAMIN\DEXPANTHENOL\NIACINAMIDE\PYRIDOXINE HYDROCHLORIDE\RIBOFLAVIN 5^-PHOSPHATE SODIUM\THIAMINE HYDROCHLORIDE\VITAMIN B COMPLEX
  6. RANITIDINE. [Concomitant]
     Active Substance: RANITIDINE
  7. ATENOLOL. [Concomitant]
     Active Substance: ATENOLOL
  8. LEVOTHYROXINE. [Concomitant]
     Active Substance: LEVOTHYROXINE
  9. DIPYRONE [Concomitant]
     Active Substance: DIPYRONE
  10. ONDASETRON [Concomitant]
     Active Substance: ONDANSETRON
  11. BEVACIZUMAB. [Suspect]
     Active Substance: BEVACIZUMAB
     Indication: OVARIAN CANCER
     Route: 042
     Dates: start: 20120328
  12. CARBOPLATIN. [Concomitant]
     Active Substance: CARBOPLATIN
     Indication: OVARIAN CANCER
  13. PACLITAXEL. [Concomitant]
     Active Substance: PACLITAXEL
     Indication: OVARIAN CANCER
  14. SERTRALINE [Concomitant]
     Active Substance: SERTRALINE HYDROCHLORIDE
  15. DRAMIN B6 [Concomitant]
     Active Substance: DIMENHYDRINATE\PYRIDOXINE HYDROCHLORIDE
  16. DICLOFENAC [Concomitant]
     Active Substance: DICLOFENAC
     Indication: ARTHRALGIA
     Dates: start: 20210218, end: 20210224
  17. LORATADINE. [Concomitant]
     Active Substance: LORATADINE

REACTIONS (4)
  - Productive cough [Recovered/Resolved]
  - Proteinuria [Unknown]
  - Azotaemia [Not Recovered/Not Resolved]
  - Blood creatinine increased [Not Recovered/Not Resolved]

NARRATIVE: CASE EVENT DATE: 20191106
